FAERS Safety Report 15617581 (Version 1)
Quarter: 2018Q4

REPORT INFORMATION
  Report Type: Spontaneous
  Country: US (occurrence: US)
  Receive Date: 20181114
  Receipt Date: 20181114
  Transmission Date: 20190205
  Serious: Yes (Other)
  Sender: FDA-Public Use
  Company Number: None

PATIENT
  Age: 80 Year
  Sex: Male
  Weight: 66.6 kg

DRUGS (6)
  1. ALKA-SELTZER PLUS MAXIMUM STRENGTH COUGH AND MUCUS DM [Suspect]
     Active Substance: DEXTROMETHORPHAN HYDROBROMIDE\GUAIFENESIN
     Indication: COUGH
     Dosage: ?          QUANTITY:1 TABLET(S);?
     Route: 048
     Dates: start: 20181112, end: 20181114
  2. ALKA-SELTZER PLUS MAXIMUM STRENGTH COUGH AND MUCUS DM [Suspect]
     Active Substance: DEXTROMETHORPHAN HYDROBROMIDE\GUAIFENESIN
     Indication: SECRETION DISCHARGE
     Dosage: ?          QUANTITY:1 TABLET(S);?
     Route: 048
     Dates: start: 20181112, end: 20181114
  3. SYMBYCORT [Concomitant]
  4. TYENOL [Concomitant]
  5. TUMERIC [Concomitant]
     Active Substance: HERBALS\TURMERIC
  6. GABAPENTIN. [Concomitant]
     Active Substance: GABAPENTIN

REACTIONS (1)
  - Diarrhoea [None]

NARRATIVE: CASE EVENT DATE: 20181112
